FAERS Safety Report 8274933-2 (Version None)
Quarter: 2012Q2

REPORT INFORMATION
  Report Type: 
  Country: None (occurrence: None)
  Receive Date: 20120409
  Receipt Date: 20120405
  Transmission Date: 20120825
  Serious: Yes (Life-Threatening, Hospitalization)
  Sender: FDA-Public Use
  Company Number: CA-2011-3461

PATIENT
  Age: 59 Year
  Sex: Male

DRUGS (9)
  1. ERBITUX [Suspect]
     Indication: NON-SMALL CELL LUNG CANCER
     Dosage: 400 MG/M2 IV
     Route: 042
     Dates: start: 20110914, end: 20111130
  2. PROCHLORPERAZINE [Concomitant]
  3. CISPLATIN [Suspect]
     Indication: NON-SMALL CELL LUNG CANCER
     Dosage: 80 MG/M2 IV
     Route: 042
     Dates: start: 20110914
  4. GLAXAL BASE [Concomitant]
  5. ATIVAN [Concomitant]
  6. UREMOL [Concomitant]
  7. VINORELBINE [Suspect]
     Indication: NON-SMALL CELL LUNG CANCER
     Dosage: 25 MG/M2 IV
     Route: 042
     Dates: start: 20110914, end: 20111205
  8. MAGNESIUM [Concomitant]
  9. ERBITUX [Suspect]
     Indication: NON-SMALL CELL LUNG CANCER
     Dosage: 80 MG/M2 IV
     Route: 042
     Dates: start: 20110914, end: 20111130

REACTIONS (2)
  - DIVERTICULAR PERFORATION [None]
  - INFECTIOUS PERITONITIS [None]
